FAERS Safety Report 4698849-3 (Version None)
Quarter: 2005Q2

REPORT INFORMATION
  Report Type: 
  Country: None (occurrence: None)
  Receive Date: 20050623
  Receipt Date: 20050610
  Transmission Date: 20051028
  Serious: Yes (Other)
  Sender: FDA-Public Use
  Company Number: S05-SAF-02198-01

PATIENT
  Age: 27 Year
  Sex: Male

DRUGS (3)
  1. CIPRALEX (ESCITALOPRAM) [Suspect]
     Dosage: 5 MG QD PO
     Route: 048
     Dates: start: 20050413, end: 20050419
  2. CIPRALEX (ESCITALOPRAM) [Suspect]
     Dosage: 10 MG QD PO
     Route: 048
     Dates: start: 20050420, end: 20050101
  3. PURATA (OXAZEPAM) [Concomitant]

REACTIONS (12)
  - BRUXISM [None]
  - COLD SWEAT [None]
  - CONFUSIONAL STATE [None]
  - CONVULSION [None]
  - DISSOCIATION [None]
  - EYE ROLLING [None]
  - FALL [None]
  - FLAT AFFECT [None]
  - HALLUCINATIONS, MIXED [None]
  - INDIFFERENCE [None]
  - PALPITATIONS [None]
  - VOMITING [None]
